FAERS Safety Report 6823733-6 (Version None)
Quarter: 2010Q3

REPORT INFORMATION
  Report Type: 
  Country: None (occurrence: None)
  Receive Date: 20100708
  Receipt Date: 20060822
  Transmission Date: 20110219
  Serious: No
  Sender: FDA-Public Use
  Company Number: US-PFIZER INC-2006103644

PATIENT
  Age: 81 Year
  Sex: Female
  Weight: 68.04 kg

DRUGS (18)
  1. CHANTIX [Suspect]
     Indication: SMOKING CESSATION THERAPY
     Dates: start: 20060801
  2. EVISTA [Concomitant]
  3. MULTI-VITAMINS [Concomitant]
  4. NEXIUM [Concomitant]
  5. ALL OTHER THERAPEUTIC PRODUCTS [Concomitant]
     Route: 055
  6. SPIRIVA [Concomitant]
  7. ALBUTEROL [Concomitant]
  8. BENICAR [Concomitant]
  9. LIPITOR [Concomitant]
  10. SYNTHROID [Concomitant]
  11. ACETYLSALICYLIC ACID [Concomitant]
  12. XANAX [Concomitant]
  13. LOPRESSOR [Concomitant]
  14. NAPROSYN [Concomitant]
  15. ULTRAM [Concomitant]
  16. ARICEPT [Concomitant]
  17. COLACE [Concomitant]
  18. LAXATIVES [Concomitant]

REACTIONS (1)
  - MUSCLE SPASMS [None]
